FAERS Safety Report 21056985 (Version 2)
Quarter: 2022Q3

REPORT INFORMATION
  Report Type: Spontaneous
  Country: US (occurrence: US)
  Receive Date: 20220708
  Receipt Date: 20220805
  Transmission Date: 20221027
  Serious: No
  Sender: FDA-Public Use
  Company Number: US-DSJP-DSU-2022-123529AA

PATIENT
  Sex: Male

DRUGS (2)
  1. TURALIO [Suspect]
     Active Substance: PEXIDARTINIB HYDROCHLORIDE
     Indication: Soft tissue neoplasm
     Dosage: 200 MG, (200 MG DAILY MORNING AND 400 MG DAILY EVENING)
     Route: 048
     Dates: start: 20211104
  2. TURALIO [Suspect]
     Active Substance: PEXIDARTINIB HYDROCHLORIDE
     Indication: Connective tissue neoplasm

REACTIONS (4)
  - Product physical issue [Unknown]
  - Product container issue [Unknown]
  - Product use issue [Unknown]
  - Sunburn [Not Recovered/Not Resolved]
